FAERS Safety Report 17048444 (Version 2)
Quarter: 2019Q4

REPORT INFORMATION
  Report Type: Spontaneous
  Country: US (occurrence: US)
  Receive Date: 20191119
  Receipt Date: 20191216
  Transmission Date: 20200122
  Serious: No
  Sender: FDA-Public Use
  Company Number: US-PFIZER INC-2017172413

PATIENT
  Age: 40 Year
  Sex: Female

DRUGS (2)
  1. GENOTROPIN [Suspect]
     Active Substance: SOMATROPIN
     Indication: GROWTH HORMONE DEFICIENCY
     Dosage: 0.2 MG, INJECTION ONCE EVERY NIGHT
  2. GENOTROPIN [Suspect]
     Active Substance: SOMATROPIN
     Indication: PITUITARY TUMOUR
     Dosage: 0.6 MG, DAILY
     Dates: start: 20170320

REACTIONS (3)
  - Wrong technique in product usage process [Recovered/Resolved]
  - Dry mouth [Unknown]
  - Device breakage [Unknown]

NARRATIVE: CASE EVENT DATE: 201704
